FAERS Safety Report 9244876 (Version 1)
Quarter: 2013Q1

REPORT INFORMATION
  Report Type: Spontaneous
  Country: US (occurrence: None)
  Receive Date: 20121130
  Receipt Date: 20121130
  Transmission Date: 20140127
  Serious: Yes (Other)
  Sender: FDA-Public Use
  Company Number: PHEH2011US011396

PATIENT
  Age: 47 Year
  Sex: Female

DRUGS (1)
  1. LAMISIL [Suspect]
     Dosage: 1 DF, QD, ORAL
     Route: 048

REACTIONS (2)
  - Stevens-Johnson syndrome [None]
  - Vulvovaginal discomfort [None]
